FAERS Safety Report 7486326-6 (Version None)
Quarter: 2011Q2

REPORT INFORMATION
  Report Type: 
  Country: None (occurrence: None)
  Receive Date: 20110517
  Receipt Date: 20110505
  Transmission Date: 20111010
  Serious: Yes (Hospitalization)
  Sender: FDA-Public Use
  Company Number: PHHY2011GB37771

PATIENT
  Age: 73 Year
  Sex: Female

DRUGS (4)
  1. WARFARIN SODIUM [Suspect]
     Indication: DEEP VEIN THROMBOSIS
     Dosage: UNK
     Route: 048
     Dates: start: 20101228, end: 20110420
  2. CLARITHROMYCIN [Concomitant]
  3. METRONIDAZOLE [Concomitant]
  4. TRIMETHOPRIM [Concomitant]

REACTIONS (3)
  - HAEMATEMESIS [None]
  - INTERNATIONAL NORMALISED RATIO INCREASED [None]
  - PNEUMONIA ASPIRATION [None]
